FAERS Safety Report 10400795 (Version 1)
Quarter: 2014Q3

REPORT INFORMATION
  Report Type: Spontaneous
  Country: US (occurrence: US)
  Receive Date: 20140821
  Receipt Date: 20140821
  Transmission Date: 20150326
  Serious: No
  Sender: FDA-Public Use
  Company Number: US-ASTRAZENECA-2014SE28760

PATIENT
  Age: 75 Year
  Sex: Female
  Weight: 52.2 kg

DRUGS (2)
  1. CLONIDINE. [Concomitant]
     Active Substance: CLONIDINE
     Indication: HYPERTENSION
  2. SYMBICORT [Suspect]
     Active Substance: BUDESONIDE\FORMOTEROL FUMARATE DIHYDRATE
     Indication: DYSPNOEA
     Dosage: 80 4.5MCG 2 PUFFS BID
     Route: 055

REACTIONS (3)
  - Fear [Unknown]
  - Injury associated with device [Unknown]
  - Intentional product misuse [Unknown]
